FAERS Safety Report 14359192 (Version 2)
Quarter: 2018Q1

REPORT INFORMATION
  Report Type: Report from Study
  Country: US (occurrence: US)
  Receive Date: 20180105
  Receipt Date: 20180105
  Transmission Date: 20180509
  Serious: No
  Sender: FDA-Public Use
  Company Number: US-AMGEN-USASL2016083277

PATIENT
  Age: 75 Year
  Sex: Female

DRUGS (1)
  1. REPATHA [Suspect]
     Active Substance: EVOLOCUMAB
     Indication: BLOOD CHOLESTEROL INCREASED
     Dosage: 140 MG, Q2MO
     Route: 065

REACTIONS (8)
  - Drug dose omission [Unknown]
  - Injury associated with device [Unknown]
  - Nervousness [Unknown]
  - Anxiety [Unknown]
  - Off label use [Unknown]
  - Muscle spasms [Recovered/Resolved]
  - Pain in extremity [Recovered/Resolved]
  - Fatigue [Unknown]

NARRATIVE: CASE EVENT DATE: 20160625
